FAERS Safety Report 23139888 (Version 1)
Quarter: 2023Q4

REPORT INFORMATION
  Report Type: Spontaneous
  Country: US (occurrence: US)
  Receive Date: 20231102
  Receipt Date: 20231102
  Transmission Date: 20240110
  Serious: Yes (Other)
  Sender: FDA-Public Use
  Company Number: US-TEVA-2023-US-2939800

PATIENT
  Sex: Female

DRUGS (1)
  1. COPAXONE [Suspect]
     Active Substance: GLATIRAMER ACETATE
     Indication: Multiple sclerosis
     Dosage: FORM STRENGTH AND ROUTE OF ADMIN: UNKNOWN
     Route: 065
     Dates: start: 2015

REACTIONS (7)
  - Multiple sclerosis [Unknown]
  - Cognitive disorder [Unknown]
  - Fatigue [Unknown]
  - Injection site reaction [Unknown]
  - Paraesthesia [Unknown]
  - Gait disturbance [Unknown]
  - Drug ineffective [Unknown]
